FAERS Safety Report 8935383 (Version 1)
Quarter: 2012Q4

REPORT INFORMATION
  Report Type: Spontaneous
  Country: US (occurrence: None)
  Receive Date: 20121127
  Receipt Date: 20121127
  Transmission Date: 20130627
  Serious: Yes (Other)
  Sender: FDA-Public Use
  Company Number: None

PATIENT
  Age: 45 Year
  Sex: Female
  Weight: 89.81 kg

DRUGS (1)
  1. MONTELUKAST [Suspect]
     Indication: ALLERGIC ASTHMA
     Route: 048
     Dates: start: 20121019, end: 20121123

REACTIONS (5)
  - Product substitution issue [None]
  - Nasal congestion [None]
  - Asthma [None]
  - Rhinorrhoea [None]
  - Product quality issue [None]
